FAERS Safety Report 12249360 (Version 1)
Quarter: 2016Q2

REPORT INFORMATION
  Report Type: Spontaneous
  Country: US (occurrence: None)
  Receive Date: 20160407
  Receipt Date: 20160407
  Transmission Date: 20160815
  Serious: No
  Sender: FDA-Public Use
  Company Number: None

PATIENT
  Sex: Female

DRUGS (1)
  1. COPAXONE [Suspect]
     Active Substance: GLATIRAMER ACETATE
     Indication: PRODUCT USED FOR UNKNOWN INDICATION
     Dosage: 40MG THREE TIMES A WEEK SUBQ
     Route: 058

REACTIONS (4)
  - Hyperhidrosis [None]
  - Dysmenorrhoea [None]
  - Cold sweat [None]
  - Metrorrhagia [None]
